FAERS Safety Report 9760042 (Version 2)
Quarter: 2013Q4

REPORT INFORMATION
  Report Type: Spontaneous
  Country: US (occurrence: US)
  Receive Date: 20131216
  Receipt Date: 20131216
  Transmission Date: 20140711
  Serious: Yes (Other)
  Sender: FDA-Public Use
  Company Number: US-JNJFOC-20131103303

PATIENT
  Age: 54 Year
  Sex: Female
  Weight: 82.56 kg

DRUGS (12)
  1. REMICADE [Suspect]
     Indication: CROHN^S DISEASE
     Route: 042
     Dates: start: 20131008
  2. REMICADE [Suspect]
     Indication: CROHN^S DISEASE
     Route: 042
     Dates: start: 20130812
  3. REMICADE [Suspect]
     Indication: CROHN^S DISEASE
     Route: 042
     Dates: start: 20130730
  4. REMICADE [Suspect]
     Indication: CROHN^S DISEASE
     Route: 042
     Dates: start: 20130702
  5. REMICADE [Suspect]
     Indication: CROHN^S DISEASE
     Route: 042
     Dates: start: 20130618
  6. CYMBALTA [Concomitant]
     Indication: DEPRESSION
     Route: 065
  7. SYNTHROID [Concomitant]
     Indication: HYPOTHYROIDISM
     Route: 065
  8. DIAZEPAM [Concomitant]
     Indication: INSOMNIA
     Route: 065
  9. DIAZEPAM [Concomitant]
     Indication: ANXIETY
     Route: 065
  10. PRILOSEC [Concomitant]
     Indication: GASTROOESOPHAGEAL REFLUX DISEASE
     Route: 065
  11. LORTAB [Concomitant]
     Indication: PAIN
     Route: 065
  12. ALLEGRA [Concomitant]
     Indication: MULTIPLE ALLERGIES
     Route: 065

REACTIONS (2)
  - Herpes zoster [Recovering/Resolving]
  - Immunosuppression [Unknown]
